FAERS Safety Report 8971999 (Version 1)
Quarter: 2012Q4

REPORT INFORMATION
  Report Type: 
  Country: CN (occurrence: CN)
  Receive Date: 20121218
  Receipt Date: 20121218
  Transmission Date: 20130627
  Serious: Yes (Hospitalization)
  Sender: FDA-Public Use
  Company Number: PHHY2012CN115791

PATIENT
  Age: 50 Year
  Sex: Female

DRUGS (2)
  1. ZIPRASIDONE [Suspect]
     Indication: MAJOR DEPRESSION
     Dosage: 40 mg, QD
  2. DULOXETINE [Suspect]
     Indication: MAJOR DEPRESSION
     Dosage: 60 mg, QD

REACTIONS (8)
  - Inappropriate antidiuretic hormone secretion [Recovering/Resolving]
  - Hyponatraemia [Recovering/Resolving]
  - Polydipsia [Recovering/Resolving]
  - Polyuria [Recovering/Resolving]
  - Epilepsy [Recovering/Resolving]
  - Dry mouth [Recovering/Resolving]
  - Coma [Recovering/Resolving]
  - Pupillary reflex impaired [Recovering/Resolving]
